FAERS Safety Report 5914269-5 (Version None)
Quarter: 2008Q4

REPORT INFORMATION
  Report Type: 
  Country: None (occurrence: None)
  Receive Date: 20081009
  Receipt Date: 20080929
  Transmission Date: 20090506
  Serious: Yes (Other)
  Sender: FDA-Public Use
  Company Number: US-ELI_LILLY_AND_COMPANY-US200808000979

PATIENT
  Age: 72 Year
  Sex: Female
  Weight: 53.968 kg

DRUGS (5)
  1. FORTEO [Suspect]
     Indication: OSTEOPOROSIS
     Dosage: 20 UG, DAILY (1/D)
     Dates: start: 20071102
  2. CLONAZEPAM [Concomitant]
  3. WELLBUTRIN XL [Concomitant]
  4. MIRALAX [Concomitant]
  5. CITRACAL + D [Concomitant]

REACTIONS (2)
  - ACETABULUM FRACTURE [None]
  - FEAR [None]
